FAERS Safety Report 8084753-X (Version None)
Quarter: 2012Q1

REPORT INFORMATION
  Report Type: 
  Country: None (occurrence: None)
  Receive Date: 20120128
  Receipt Date: 20110317
  Transmission Date: 20120608
  Serious: No
  Sender: FDA-Public Use
  Company Number: US-ABBOTT-11P-163-0712394-00

PATIENT
  Age: 69 Year
  Sex: Male

DRUGS (5)
  1. PANTOPRAZOLE [Concomitant]
     Indication: GASTROOESOPHAGEAL REFLUX DISEASE
  2. HUMIRA [Suspect]
     Indication: CROHN'S DISEASE
     Dates: start: 20110114
  3. CALCIUM [Concomitant]
     Indication: MINERAL SUPPLEMENTATION
  4. LOPERAMIDE HCL [Concomitant]
     Indication: DIARRHOEA
  5. ACTONEL [Concomitant]
     Indication: OSTEOPENIA

REACTIONS (1)
  - PYREXIA [None]
